FAERS Safety Report 16277341 (Version 1)
Quarter: 2019Q2

REPORT INFORMATION
  Report Type: Spontaneous
  Country: US (occurrence: US)
  Receive Date: 20190506
  Receipt Date: 20190506
  Transmission Date: 20190711
  Serious: Yes (Other)
  Sender: FDA-Public Use
  Company Number: None

PATIENT
  Age: 40 Year
  Sex: Female
  Weight: 113 kg

DRUGS (2)
  1. GAMUNEX [Suspect]
     Active Substance: HUMAN IMMUNOGLOBULIN G
     Indication: IMMUNODEFICIENCY
     Dosage: ?          OTHER FREQUENCY:ONCE MONTHLY;?
     Route: 042
     Dates: start: 20190505, end: 20190505
  2. GAMUNEX [Suspect]
     Active Substance: HUMAN IMMUNOGLOBULIN G
     Indication: IMMUNODEFICIENCY
     Dosage: ?          OTHER FREQUENCY:ONCE MONTHLY;?
     Route: 042
     Dates: start: 20190505, end: 20190505

REACTIONS (2)
  - Chest pain [None]
  - Blood pressure fluctuation [None]

NARRATIVE: CASE EVENT DATE: 20190505
